FAERS Safety Report 6142577-4 (Version None)
Quarter: 2009Q2

REPORT INFORMATION
  Report Type: 
  Country: None (occurrence: None)
  Receive Date: 20090403
  Receipt Date: 20090326
  Transmission Date: 20091009
  Serious: Yes (Hospitalization)
  Sender: FDA-Public Use
  Company Number: US-ASTRAZENECA-2009UW07689

PATIENT
  Age: 48 Year
  Sex: Female

DRUGS (13)
  1. ZESTORETIC [Suspect]
     Dosage: 20/12.5 MG
     Route: 048
  2. DESVENLAFAXINE SUCCINATE MONOHYDRATE CODE NOT BROKEN [Suspect]
     Indication: HOT FLUSH
     Route: 048
     Dates: start: 20080909, end: 20081224
  3. IBUPROFEN [Suspect]
  4. LYRICA [Suspect]
  5. LEXAPRO [Suspect]
  6. CLONAZEPAM [Suspect]
  7. ABILIFY [Suspect]
     Route: 065
  8. FLUTICASONE PROPIONATE [Suspect]
     Dosage: 2 SPRAYS DAILY
  9. LORATADINE [Suspect]
  10. VICODIN [Suspect]
     Dosage: 5/500
  11. AMBIEN [Suspect]
     Route: 048
  12. VIVELLE [Suspect]
     Dosage: 0.1 MG
  13. ROBAXIN [Suspect]

REACTIONS (8)
  - ASTHENIA [None]
  - CONDITION AGGRAVATED [None]
  - DYSARTHRIA [None]
  - HEADACHE [None]
  - HYPERTENSION [None]
  - HYPOKALAEMIA [None]
  - MENTAL STATUS CHANGES [None]
  - POLYMEDICATION [None]
